FAERS Safety Report 11698067 (Version 1)
Quarter: 2015Q4

REPORT INFORMATION
  Report Type: Spontaneous
  Country: US (occurrence: US)
  Receive Date: 20151104
  Receipt Date: 20151104
  Transmission Date: 20160304
  Serious: No
  Sender: FDA-Public Use
  Company Number: US-ELI_LILLY_AND_COMPANY-US201012004813

PATIENT
  Age: 80 Year
  Sex: Female

DRUGS (1)
  1. FORTEO [Suspect]
     Active Substance: TERIPARATIDE
     Indication: MULTIPLE FRACTURES
     Dosage: 20 UG, DAILY (1/D)
     Dates: start: 200906

REACTIONS (5)
  - Blood calcium increased [Unknown]
  - Drug dose omission [Unknown]
  - Urinary tract infection [Recovered/Resolved]
  - Urinary tract infection [Unknown]
  - Intentional product use issue [Unknown]

NARRATIVE: CASE EVENT DATE: 201006
